FAERS Safety Report 9090850 (Version 1)
Quarter: 2013Q1

REPORT INFORMATION
  Report Type: Spontaneous
  Country: ES (occurrence: ES)
  Receive Date: 20130131
  Receipt Date: 20130131
  Transmission Date: 20140127
  Serious: Yes (Other)
  Sender: FDA-Public Use
  Company Number: ES-ROCHE-1185087

PATIENT
  Age: 50 Year
  Sex: Male
  Weight: 78 kg

DRUGS (4)
  1. PEGASYS [Suspect]
     Indication: CHRONIC HEPATITIS C
     Route: 058
     Dates: start: 20120601, end: 20121107
  2. REBETOL [Suspect]
     Indication: CHRONIC HEPATITIS C
     Route: 048
     Dates: start: 20120601, end: 20121107
  3. INCIVO [Suspect]
     Indication: CHRONIC HEPATITIS C
     Route: 048
     Dates: start: 20120601, end: 20120828
  4. BINOCRIT [Suspect]
     Indication: ANAEMIA
     Route: 058
     Dates: start: 20120625, end: 20120924

REACTIONS (2)
  - Rash [Recovering/Resolving]
  - Hypereosinophilic syndrome [Recovered/Resolved]
